FAERS Safety Report 7497366-5 (Version None)
Quarter: 2011Q2

REPORT INFORMATION
  Report Type: 
  Country: None (occurrence: None)
  Receive Date: 20110523
  Receipt Date: 20110513
  Transmission Date: 20111010
  Serious: Yes (Hospitalization)
  Sender: FDA-Public Use
  Company Number: FR-ASTRAZENECA-2011SE29315

PATIENT
  Age: 23 Year
  Sex: Female

DRUGS (14)
  1. ROCEPHIN [Suspect]
     Indication: LUNG DISORDER
     Route: 042
     Dates: start: 20110109, end: 20110113
  2. AMOXICILLIN [Concomitant]
     Indication: BRONCHITIS
     Dates: start: 20110107
  3. ROVAMYCINE [Suspect]
     Indication: LUNG DISORDER
     Route: 042
     Dates: start: 20110109, end: 20110113
  4. VENTOLIN [Concomitant]
     Indication: BRONCHITIS
     Dates: start: 20110107
  5. HEPARINE SODIQUE [Suspect]
     Indication: THROMBOSIS PROPHYLAXIS
     Route: 058
     Dates: start: 20110109, end: 20110122
  6. MIDAZOLAM HYDROCHLORIDE [Suspect]
     Indication: ENDOTRACHEAL INTUBATION
     Route: 042
     Dates: start: 20110110, end: 20110120
  7. TAMIFLU [Suspect]
     Indication: INFLUENZA
     Route: 065
     Dates: start: 20110109, end: 20110115
  8. PRIMPERAN TAB [Suspect]
     Indication: PRODUCT USED FOR UNKNOWN INDICATION
     Route: 042
     Dates: start: 20110112, end: 20110117
  9. NEXIUM [Suspect]
     Indication: GASTROOESOPHAGEAL REFLUX DISEASE
     Route: 042
     Dates: start: 20110109, end: 20110115
  10. CLAFORAN [Concomitant]
     Dates: start: 20110109
  11. ERYTHROMYCINE [Suspect]
     Indication: LUNG DISORDER
     Route: 042
     Dates: start: 20110114, end: 20110117
  12. PROPOFOL [Suspect]
     Indication: ANAESTHESIA
     Route: 042
     Dates: start: 20110112, end: 20110118
  13. LASIX [Suspect]
     Indication: PRODUCT USED FOR UNKNOWN INDICATION
     Route: 042
     Dates: start: 20110113, end: 20110119
  14. SUFENTA PRESERVATIVE FREE [Suspect]
     Indication: ANAESTHESIA
     Route: 042
     Dates: start: 20110110, end: 20110120

REACTIONS (4)
  - CHOLESTASIS [None]
  - DRUG EXPOSURE DURING PREGNANCY [None]
  - PROTEINURIA [None]
  - CYTOLYTIC HEPATITIS [None]
